FAERS Safety Report 5904020-7 (Version None)
Quarter: 2008Q3

REPORT INFORMATION
  Report Type: 
  Country: None (occurrence: None)
  Receive Date: 20080930
  Receipt Date: 20080923
  Transmission Date: 20090109
  Serious: Yes (Life-Threatening, Hospitalization)
  Sender: FDA-Public Use
  Company Number: BR-ABBOTT-08P-020-0476336-00

PATIENT
  Sex: Male
  Weight: 71.3 kg

DRUGS (4)
  1. RITONAVIR SOFT GELATIN CAPSULES [Suspect]
     Indication: HIV INFECTION
     Route: 048
     Dates: start: 20060809
  2. TMC114 [Concomitant]
     Indication: HIV INFECTION
     Route: 048
     Dates: start: 20060809
  3. TMC125 (BLINDED) [Concomitant]
     Indication: HIV INFECTION
     Route: 048
     Dates: start: 20060809
  4. LAMIVUDINE + ZIDOVUDINE [Concomitant]
     Indication: HIV INFECTION
     Route: 048
     Dates: start: 20060809, end: 20061029

REACTIONS (1)
  - PANCYTOPENIA [None]
